FAERS Safety Report 6844128-5 (Version None)
Quarter: 2010Q3

REPORT INFORMATION
  Report Type: 
  Country: None (occurrence: None)
  Receive Date: 20100715
  Receipt Date: 20100624
  Transmission Date: 20110219
  Serious: Yes (Hospitalization)
  Sender: FDA-Public Use
  Company Number: A0817899A

PATIENT
  Sex: Male

DRUGS (1)
  1. AVANDIA [Suspect]
     Route: 065
     Dates: start: 20020917, end: 20070616

REACTIONS (3)
  - ADVERSE EVENT [None]
  - HEART INJURY [None]
  - MYOCARDIAL INFARCTION [None]
